FAERS Safety Report 6650279-0 (Version None)
Quarter: 2010Q1

REPORT INFORMATION
  Report Type: 
  Country: None (occurrence: None)
  Receive Date: 20100325
  Receipt Date: 20090203
  Transmission Date: 20100710
  Serious: Yes (Other)
  Sender: FDA-Public Use
  Company Number: PHHY2009FR60950

PATIENT
  Age: 25 Year
  Sex: Female

DRUGS (4)
  1. CYCLOSPORINE [Suspect]
     Indication: COLITIS ULCERATIVE
     Dosage: UNK
     Route: 042
  2. CYCLOSPORINE [Suspect]
     Indication: CROHN'S DISEASE
  3. INFLIXIMAB [Concomitant]
     Indication: COLITIS ULCERATIVE
  4. STEROIDS NOS [Concomitant]
     Indication: COLITIS ULCERATIVE
     Dosage: UNK
     Route: 042

REACTIONS (5)
  - ANORECTAL DISORDER [None]
  - CAESAREAN SECTION [None]
  - DRUG EXPOSURE DURING PREGNANCY [None]
  - DRUG INEFFECTIVE [None]
  - PREMATURE LABOUR [None]
